FAERS Safety Report 7952593-5 (Version None)
Quarter: 2011Q4

REPORT INFORMATION
  Report Type: 
  Country: None (occurrence: None)
  Receive Date: 20111201
  Receipt Date: 20111122
  Transmission Date: 20120403
  Serious: Yes (Other)
  Sender: FDA-Public Use
  Company Number: GB-ABBOTT-11P-167-0871589-00

PATIENT
  Age: 81 Year
  Sex: Female

DRUGS (3)
  1. IBUPROFEN [Suspect]
     Indication: PAIN
     Dosage: GEL
     Route: 061
     Dates: start: 20111018, end: 20111018
  2. IBUPROFEN [Suspect]
     Indication: COCCYDYNIA
  3. ETCAL [Concomitant]
     Indication: PRODUCT USED FOR UNKNOWN INDICATION

REACTIONS (1)
  - SWELLING FACE [None]
